FAERS Safety Report 6190377-1 (Version None)
Quarter: 2009Q2

REPORT INFORMATION
  Report Type: 
  Country: None (occurrence: None)
  Receive Date: 20090514
  Receipt Date: 20090507
  Transmission Date: 20091009
  Serious: Yes (Other)
  Sender: FDA-Public Use
  Company Number: B0554279A

PATIENT
  Sex: Male
  Weight: 70 kg

DRUGS (23)
  1. ARRANON [Suspect]
     Dosage: 1500MGM2 ALTERNATE DAYS
     Route: 042
     Dates: start: 20081020, end: 20081024
  2. AMBISOME [Suspect]
     Route: 042
     Dates: start: 20080912, end: 20081029
  3. GRAN [Concomitant]
     Dates: start: 20080820, end: 20081013
  4. FUNGUARD [Concomitant]
     Dates: start: 20080825, end: 20080907
  5. VFEND [Concomitant]
     Dosage: 400MG PER DAY
     Route: 048
     Dates: start: 20080907, end: 20080911
  6. CEFTAZIDIME [Concomitant]
     Dosage: 4G PER DAY
     Route: 042
     Dates: start: 20080912, end: 20080922
  7. VANCOMYCIN HCL [Concomitant]
     Dosage: 2G PER DAY
     Route: 042
     Dates: start: 20080912, end: 20080920
  8. PASIL [Concomitant]
     Dosage: 1000MG PER DAY
     Dates: start: 20080922, end: 20081029
  9. TAKEPRON [Concomitant]
     Route: 048
     Dates: start: 20080926
  10. CRAVIT [Concomitant]
     Route: 048
     Dates: start: 20081002, end: 20081006
  11. CYLOCIDE [Concomitant]
     Indication: NEOPLASM MALIGNANT
     Dosage: 6800MG PER DAY
     Dates: start: 20081002, end: 20081004
  12. VEPESID [Concomitant]
     Dosage: 170MG PER DAY
     Dates: start: 20081002, end: 20081004
  13. DEXAMETHASONE SODIUM PHOSPHATE [Concomitant]
     Dosage: 40MG PER DAY
     Dates: start: 20081002, end: 20081004
  14. MAXIPIME [Concomitant]
     Dosage: 4G PER DAY
     Route: 042
     Dates: start: 20081006, end: 20081013
  15. BAKTAR [Concomitant]
     Dosage: 1UNIT PER DAY
     Route: 048
     Dates: start: 20081008
  16. MEROPEN [Concomitant]
     Dosage: 2G PER DAY
     Dates: start: 20081010, end: 20081024
  17. VEPESID [Concomitant]
     Indication: NEOPLASM MALIGNANT
     Route: 042
     Dates: start: 20081002, end: 20081004
  18. DEXAMETHASONE 4MG TAB [Concomitant]
     Indication: NEOPLASM MALIGNANT
     Dates: start: 20081002, end: 20081004
  19. METHOTREXATE [Concomitant]
     Indication: NEOPLASM MALIGNANT
     Dates: start: 20081002, end: 20081002
  20. MEROPEN [Concomitant]
     Dates: start: 20081014, end: 20081024
  21. PASIL [Concomitant]
     Dates: start: 20081024, end: 20081029
  22. CEFTAZIDIME [Concomitant]
     Dates: start: 20081029, end: 20081111
  23. VFEND [Concomitant]
     Route: 048
     Dates: start: 20081029, end: 20081215

REACTIONS (1)
  - RENAL IMPAIRMENT [None]
